FAERS Safety Report 5033319-4 (Version None)
Quarter: 2006Q2

REPORT INFORMATION
  Report Type: 
  Country: None (occurrence: None)
  Receive Date: 20060515
  Receipt Date: 20060221
  Transmission Date: 20061013
  Serious: No
  Sender: FDA-Public Use
  Company Number: S06-USA-00655-01

PATIENT
  Sex: Female

DRUGS (3)
  1. NAMENDA [Suspect]
     Dosage: 10 MG QAM PO
     Route: 048
     Dates: start: 20051103
  2. NAMENDA [Suspect]
     Dosage: 5 MG QHS PO
     Route: 048
     Dates: start: 20051103
  3. NAMENDA [Suspect]
     Dosage: 5 MG BID PO
     Route: 048
     Dates: start: 20041104, end: 20051102

REACTIONS (1)
  - POLLAKIURIA [None]
